FAERS Safety Report 4558474-1 (Version None)
Quarter: 2005Q1

REPORT INFORMATION
  Report Type: 
  Country: None (occurrence: None)
  Receive Date: 20050119
  Receipt Date: 20041214
  Transmission Date: 20050727
  Serious: Yes (Hospitalization, Other)
  Sender: FDA-Public Use
  Company Number: US_0501109885

PATIENT
  Age: 42 Year
  Sex: Female
  Weight: 72 kg

DRUGS (21)
  1. ZYPREXA [Suspect]
     Indication: SCHIZOAFFECTIVE DISORDER
     Dosage: 15 MG DAY
     Dates: start: 19990929, end: 20040713
  2. COMBIVENT [Concomitant]
  3. PRINIVIL [Concomitant]
  4. PRILOSEC (OMEPRAZOLE RATIOPHARM) [Concomitant]
  5. ATIVAN [Concomitant]
  6. PAXIL CR (PARAXETINE HYDROCHLORIDE) [Concomitant]
  7. PREDNISONE [Concomitant]
  8. THEO-DUR [Concomitant]
  9. PROTONIX [Concomitant]
  10. THEOPHYLLINE [Concomitant]
  11. DESIPRAMIDE HCL [Concomitant]
  12. FLOVENT [Concomitant]
  13. BECONASE (BECLOMETASONE DIPROPIONATE) [Concomitant]
  14. FLUOCINONIDE [Concomitant]
  15. TOLAZAMIDE [Concomitant]
  16. CHLORTRIMETON (CHLORPHENIRAMINE MALEATE) [Concomitant]
  17. CEFTIN [Concomitant]
  18. UNASYN (SULTAMICILLIN TOSILATE) [Concomitant]
  19. PHENERGAN [Concomitant]
  20. NORLUTATE (NORETHISTERONE ACETATE) [Concomitant]
  21. TEMAZEPAM [Concomitant]

REACTIONS (47)
  - ABDOMINAL PAIN [None]
  - ABDOMINAL PAIN LOWER [None]
  - ABNORMAL FAECES [None]
  - ARTHRALGIA [None]
  - ASTHENIA [None]
  - ASTHMA [None]
  - BACK PAIN [None]
  - BLOOD GLUCOSE DECREASED [None]
  - BLOOD PRESSURE SYSTOLIC INCREASED [None]
  - BRONCHITIS [None]
  - BUTTOCK PAIN [None]
  - CHEST PAIN [None]
  - CHOLECYSTITIS [None]
  - CHOLELITHIASIS [None]
  - CONDITION AGGRAVATED [None]
  - CYST [None]
  - DECREASED APPETITE [None]
  - DIABETES MELLITUS [None]
  - DIARRHOEA [None]
  - DIZZINESS [None]
  - DYSPEPSIA [None]
  - FAECES DISCOLOURED [None]
  - FALL [None]
  - FATIGUE [None]
  - FEELING ABNORMAL [None]
  - FOOD POISONING [None]
  - HEADACHE [None]
  - HEPATIC STEATOSIS [None]
  - HYPERHIDROSIS [None]
  - HYPOTENSION [None]
  - LACRIMATION INCREASED [None]
  - LOSS OF CONSCIOUSNESS [None]
  - MUSCLE STRAIN [None]
  - NAUSEA [None]
  - PAIN IN EXTREMITY [None]
  - PAINFUL DEFAECATION [None]
  - PANCREATITIS [None]
  - PROCTALGIA [None]
  - RECTAL HAEMORRHAGE [None]
  - RHINITIS ALLERGIC [None]
  - THROMBOCYTHAEMIA [None]
  - TREATMENT NONCOMPLIANCE [None]
  - TUNNEL VISION [None]
  - VERTIGO [None]
  - VISION BLURRED [None]
  - VOMITING [None]
  - WHITE BLOOD CELL COUNT INCREASED [None]
